FAERS Safety Report 11381110 (Version 3)
Quarter: 2016Q2

REPORT INFORMATION
  Report Type: Report from Study
  Country: JP (occurrence: JP)
  Receive Date: 20150814
  Receipt Date: 20160406
  Transmission Date: 20160815
  Serious: Yes (Death)
  Sender: FDA-Public Use
  Company Number: JP-AMGEN-JPNSP2015082749

PATIENT
  Age: 87 Year
  Sex: Male

DRUGS (27)
  1. ELNEOPA NO.2 [Concomitant]
     Active Substance: AMINO ACIDS\CARBOHYDRATES\ELECTROLYTES NOS\VITAMINS
     Dosage: 2000 ML, UNK
     Route: 041
     Dates: start: 20141208, end: 20150407
  2. DESFERAL [Concomitant]
     Active Substance: DEFEROXAMINE MESYLATE
     Indication: HAEMOSIDEROSIS
     Dosage: UNK UNK, QWK
     Route: 041
     Dates: start: 20141208, end: 20150724
  3. ISOTONIC SODIUM CHLORIDE SOLUTION [Concomitant]
     Active Substance: SODIUM CHLORIDE
     Dosage: 100 ML, BID
     Route: 042
     Dates: start: 20150623, end: 20150704
  4. MEROPEN                            /01250501/ [Concomitant]
     Active Substance: MEROPENEM
     Indication: PNEUMONIA
     Dosage: 0.5 G, BID
     Route: 041
     Dates: start: 20150623, end: 20150704
  5. DARBEPOETIN ALFA [Suspect]
     Active Substance: DARBEPOETIN ALFA
     Dosage: 40 MUG, QWK
     Route: 058
     Dates: start: 20150703
  6. TARGOCID [Concomitant]
     Active Substance: TEICOPLANIN
     Indication: PNEUMONIA
     Dosage: 800 MG, UNK
     Route: 042
     Dates: start: 20150616
  7. MINOCYCLINE HYDROCHLORIDE. [Concomitant]
     Active Substance: MINOCYCLINE HYDROCHLORIDE
     Indication: PNEUMONIA
     Dosage: 100 MG, BID
     Route: 041
     Dates: start: 20150716, end: 20150723
  8. DARBEPOETIN ALFA [Suspect]
     Active Substance: DARBEPOETIN ALFA
     Indication: MYELODYSPLASTIC SYNDROME
     Dosage: 10 MUG, QWK
     Route: 058
     Dates: start: 20141218
  9. VITAMIN B COMPLEX [Concomitant]
     Active Substance: CYANOCOBALAMIN\DEXPANTHENOL\NIACINAMIDE\PYRIDOXINE HYDROCHLORIDE\RIBOFLAVIN 5^-PHOSPHATE SODIUM\THIAMINE HYDROCHLORIDE\VITAMIN B COMPLEX
     Dosage: 10 ML, UNK
     Route: 041
     Dates: start: 20150408, end: 20150416
  10. GLUCOSE [Concomitant]
     Active Substance: DEXTROSE
     Dosage: 2 DF, UNK
     Route: 042
     Dates: start: 20150701, end: 20150723
  11. ISOTONIC SODIUM CHLORIDE SOLUTION [Concomitant]
     Active Substance: SODIUM CHLORIDE
     Dosage: 100 ML, QD
     Route: 042
     Dates: start: 20150715
  12. ISOTONIC SODIUM CHLORIDE SOLUTION [Concomitant]
     Active Substance: SODIUM CHLORIDE
     Dosage: 50 ML, BID
     Route: 042
     Dates: start: 20150716, end: 20150723
  13. FINIBAX [Concomitant]
     Active Substance: DORIPENEM MONOHYDRATE
     Indication: PNEUMONIA
     Dosage: 0.5 G, QD
     Route: 041
     Dates: start: 20150715
  14. FIRSTCIN [Concomitant]
     Active Substance: CEFOZOPRAN HYDROCHLORIDE
     Indication: PNEUMONIA
     Dosage: 1 G, BID
     Route: 042
     Dates: start: 20150716, end: 20150729
  15. BFLUID [Concomitant]
     Active Substance: AMINO ACIDS\DEXTROSE\ELECTROLYTES NOS\VITAMINS
     Dosage: 1000 ML, UNK
     Route: 041
     Dates: start: 20150408, end: 20150416
  16. SOLDEM 3A [Concomitant]
     Active Substance: CARBOHYDRATES\POTASSIUM CHLORIDE\SODIUM CHLORIDE\SODIUM LACTATE
     Indication: HAEMOSIDEROSIS
     Dosage: 500 ML, UNK
     Route: 041
     Dates: start: 20150417, end: 20150424
  17. ISOTONIC SODIUM CHLORIDE SOLUTION [Concomitant]
     Active Substance: SODIUM CHLORIDE
     Indication: PNEUMONIA
     Dosage: 100 ML, UNK
     Route: 042
     Dates: start: 20150608, end: 20150615
  18. ISOTONIC SODIUM CHLORIDE SOLUTION [Concomitant]
     Active Substance: SODIUM CHLORIDE
     Dosage: 100 ML, BID
     Route: 042
     Dates: start: 20150625, end: 20150630
  19. ISOTONIC SODIUM CHLORIDE SOLUTION [Concomitant]
     Active Substance: SODIUM CHLORIDE
     Dosage: 100 ML, BID
     Route: 042
     Dates: start: 20150716, end: 20150729
  20. DARBEPOETIN ALFA [Suspect]
     Active Substance: DARBEPOETIN ALFA
     Dosage: 20 MUG, QWK
     Route: 058
     Dates: start: 20150102
  21. DARBEPOETIN ALFA [Suspect]
     Active Substance: DARBEPOETIN ALFA
     Dosage: 40 MUG, QWK
     Route: 058
     Dates: start: 20150206
  22. ZOSYN [Concomitant]
     Active Substance: PIPERACILLIN SODIUM\TAZOBACTAM SODIUM
     Indication: PNEUMONIA
     Dosage: 4.5 G, BID
     Route: 042
     Dates: start: 20150625, end: 20150630
  23. DARBEPOETIN ALFA [Suspect]
     Active Substance: DARBEPOETIN ALFA
     Dosage: 40 MUG, Q2WK
     Route: 058
     Dates: start: 20150529
  24. AMINO ACIDS NOS W/PROTEINS NOS [Concomitant]
     Dosage: UNK
     Route: 050
     Dates: start: 20150417, end: 20150609
  25. ELNEOPA NO.1 [Concomitant]
     Dosage: 1000 ML, UNK
     Route: 041
     Dates: start: 20150724, end: 20150730
  26. FUROSEMIDE. [Concomitant]
     Active Substance: FUROSEMIDE
     Dosage: 1 DF, UNK
     Route: 042
     Dates: start: 20150724, end: 20150730
  27. CEFTRIAXONE SODIUM. [Concomitant]
     Active Substance: CEFTRIAXONE SODIUM
     Indication: PNEUMONIA
     Dosage: 2 G, UNK
     Route: 042
     Dates: start: 20150608, end: 20150615

REACTIONS (1)
  - Pneumonia [Fatal]
